FAERS Safety Report 22033023 (Version 1)
Quarter: 2023Q1

REPORT INFORMATION
  Report Type: Report from Study
  Country: IT (occurrence: IT)
  Receive Date: 20230224
  Receipt Date: 20230224
  Transmission Date: 20230418
  Serious: Yes (Other)
  Sender: FDA-Public Use
  Company Number: None

PATIENT
  Age: 20 Year
  Sex: Female

DRUGS (4)
  1. XANAX [Suspect]
     Active Substance: ALPRAZOLAM
     Indication: Product used for unknown indication
     Dosage: PRN, FREQUENCY OF ADMINISTRATION: AS NEEDED
     Route: 065
     Dates: start: 20220101
  2. PREGABALIN [Suspect]
     Active Substance: PREGABALIN
     Indication: Product used for unknown indication
     Dosage: 25 MILLIGRAM (25, UNIT OF MEASURE: MILLIGRAMS)
     Route: 065
     Dates: start: 20220101
  3. RIVOTRIL [Suspect]
     Active Substance: CLONAZEPAM
     Indication: Product used for unknown indication
     Dosage: UNK
     Route: 065
     Dates: start: 20220101
  4. VALPROATE SODIUM [Concomitant]
     Active Substance: VALPROATE SODIUM
     Dosage: UNK
     Route: 065

REACTIONS (3)
  - Drug abuse [Unknown]
  - Sopor [Unknown]
  - Confusional state [Unknown]

NARRATIVE: CASE EVENT DATE: 20220910
